FAERS Safety Report 18332271 (Version 3)
Quarter: 2020Q4

REPORT INFORMATION
  Report Type: Spontaneous
  Country: CA (occurrence: CA)
  Receive Date: 20200930
  Receipt Date: 20201210
  Transmission Date: 20210113
  Serious: Yes (Hospitalization)
  Sender: FDA-Public Use
  Company Number: CA-PFIZER INC-2020329935

PATIENT
  Age: 62 Year
  Sex: Male

DRUGS (2)
  1. SULFASALAZINE. [Concomitant]
     Active Substance: SULFASALAZINE
     Dosage: UNK
  2. XELJANZ [Suspect]
     Active Substance: TOFACITINIB CITRATE
     Indication: RHEUMATOID ARTHRITIS
     Dosage: 5 MG, 1X/DAY
     Route: 048
     Dates: start: 20200822, end: 20200910

REACTIONS (5)
  - Renal failure [Not Recovered/Not Resolved]
  - Atrial flutter [Not Recovered/Not Resolved]
  - Dizziness [Unknown]
  - Cardiac disorder [Recovering/Resolving]
  - Pain [Unknown]

NARRATIVE: CASE EVENT DATE: 202009
